FAERS Safety Report 5917996-9 (Version None)
Quarter: 2008Q4

REPORT INFORMATION
  Report Type: 
  Country: None (occurrence: None)
  Receive Date: 20081014
  Receipt Date: 20081006
  Transmission Date: 20090506
  Serious: Yes (Hospitalization)
  Sender: FDA-Public Use
  Company Number: US-PURDUE-DEU_2008_0004731

PATIENT
  Age: 56 Year
  Sex: Male

DRUGS (15)
  1. MORPHINE SULFATE [Suspect]
     Indication: CANCER PAIN
     Dosage: UNK, SEE TEXT
     Route: 065
  2. FENTANYL [Suspect]
     Indication: CANCER PAIN
     Route: 062
  3. MORPHINE SULFATE [Suspect]
     Indication: CANCER PAIN
     Dosage: UNK, PRN
     Route: 048
  4. MORPHINE SULFATE [Suspect]
     Dosage: 230 MG, TID
     Route: 048
  5. MORPHINE SULFATE INJ [Suspect]
     Indication: CANCER PAIN
     Dosage: UNK, PRN
     Route: 048
  6. MORPHINE SULFATE INJ [Suspect]
     Dosage: 120 MG, Q3H
     Route: 048
  7. MORPHINE SULFATE INJ [Suspect]
     Dosage: 200 MG, Q3H
     Route: 048
  8. DEXAMETHASONE [Concomitant]
  9. OXYCODONE HCL [Suspect]
     Indication: CANCER PAIN
     Route: 048
  10. OXYCODONE HCL [Suspect]
     Dosage: 120 MG, TID
     Route: 048
  11. OXYCODONE HCL [Suspect]
     Dosage: 60 MG, BID
     Route: 048
  12. OXYCODONE HCL [Suspect]
     Indication: CANCER PAIN
     Dosage: 15 MG, Q4H PRN
     Route: 048
  13. OXYCODONE HCL [Suspect]
     Dosage: 50 MG, Q8H PRN
     Route: 048
  14. IBUPROFEN TABLETS [Concomitant]
     Indication: CANCER PAIN
     Route: 065
  15. HYDROMORPHONE HCL [Suspect]
     Indication: CANCER PAIN
     Dosage: UNK, SEE TEXT
     Route: 065

REACTIONS (7)
  - ASTHENIA [None]
  - FATIGUE [None]
  - HYPERAESTHESIA [None]
  - NAUSEA [None]
  - SEDATION [None]
  - SOMNOLENCE [None]
  - VOMITING [None]
